FAERS Safety Report 4504806-X (Version None)
Quarter: 2004Q4

REPORT INFORMATION
  Report Type: 
  Country: None (occurrence: None)
  Receive Date: 20041118
  Receipt Date: 20041015
  Transmission Date: 20050328
  Serious: Yes (Death)
  Sender: FDA-Public Use
  Company Number: PHFR2004GB03809

PATIENT
  Age: 74 Year
  Sex: Male

DRUGS (1)
  1. EXELON [Suspect]
     Indication: DEMENTIA
     Dosage: 4.5 MG, BID
     Route: 048

REACTIONS (4)
  - DECUBITUS ULCER [None]
  - DYSPHAGIA [None]
  - PNEUMONIA [None]
  - SPEECH DISORDER [None]
